FAERS Safety Report 8435733-3 (Version None)
Quarter: 2012Q2

REPORT INFORMATION
  Report Type: 
  Country: None (occurrence: None)
  Receive Date: 20120614
  Receipt Date: 20120607
  Transmission Date: 20120825
  Serious: No
  Sender: FDA-Public Use
  Company Number: US-PFIZER INC-2012094287

PATIENT
  Sex: Female
  Weight: 81.633 kg

DRUGS (2)
  1. DIPHENHYDRAMINE HCL [Concomitant]
     Dosage: UNK
  2. ADVIL PM [Suspect]
     Indication: SLEEP DISORDER
     Dosage: UNK

REACTIONS (1)
  - DRUG INEFFECTIVE [None]
